FAERS Safety Report 4343443-7 (Version None)
Quarter: 2004Q2

REPORT INFORMATION
  Report Type: 
  Country: None (occurrence: None)
  Receive Date: 20040419
  Receipt Date: 20040413
  Transmission Date: 20050107
  Serious: Yes (Disabling)
  Sender: FDA-Public Use
  Company Number: 2004UW05833

PATIENT

DRUGS (4)
  1. SENSORCAINE [Suspect]
     Indication: NERVE BLOCK
     Dosage: 150 MG DAILY
  2. SENSORCAINE [Suspect]
     Indication: WRIST FRACTURE
     Dosage: 150 MG DAILY
  3. XYLOCAINE W/ EPINEPHRINE [Suspect]
     Indication: NERVE BLOCK
     Dosage: 450 MG DAILY
  4. XYLOCAINE W/ EPINEPHRINE [Suspect]
     Indication: WRIST FRACTURE
     Dosage: 450 MG DAILY

REACTIONS (5)
  - ANAESTHETIC COMPLICATION [None]
  - PARALYSIS [None]
  - POLYNEUROPATHY [None]
  - RADIAL NERVE PALSY [None]
  - REFLEX SYMPATHETIC DYSTROPHY [None]
